FAERS Safety Report 6939593-9 (Version None)
Quarter: 2010Q3

REPORT INFORMATION
  Report Type: 
  Country: None (occurrence: None)
  Receive Date: 20100820
  Receipt Date: 20100812
  Transmission Date: 20110219
  Serious: Yes (Hospitalization)
  Sender: FDA-Public Use
  Company Number: 017120

PATIENT
  Age: 30 Year
  Sex: Male

DRUGS (2)
  1. KEPPRA [Suspect]
     Indication: EPILEPSY
     Dosage: 250 MG ORAL, (PROGRESSIVE INCREASED TILL 1000MG ORAL
     Route: 048
     Dates: end: 20100101
  2. KEPPRA [Suspect]
     Indication: EPILEPSY
     Dosage: 250 MG ORAL, (PROGRESSIVE INCREASED TILL 1000MG ORAL
     Route: 048
     Dates: end: 20100101

REACTIONS (3)
  - CONDITION AGGRAVATED [None]
  - DEPRESSION [None]
  - PULMONARY EMBOLISM [None]
